FAERS Safety Report 5096373-X (Version None)
Quarter: 2006Q3

REPORT INFORMATION
  Report Type: 
  Country: None (occurrence: None)
  Receive Date: 20060728
  Receipt Date: 20060424
  Transmission Date: 20061208
  Serious: No
  Sender: FDA-Public Use
  Company Number: COT_0526_2006

PATIENT
  Age: 53 Year
  Sex: Female
  Weight: 71.2147 kg

DRUGS (3)
  1. VENTAVIS [Suspect]
     Indication: PULMONARY HYPERTENSION
     Dosage: 5 MCG 8XD IH
     Dates: start: 20060307
  2. SILDENAFIL [Concomitant]
  3. ASPIRIN [Concomitant]

REACTIONS (1)
  - FATIGUE [None]
